FAERS Safety Report 11471369 (Version 2)
Quarter: 2015Q3

REPORT INFORMATION
  Report Type: Spontaneous
  Country: US (occurrence: US)
  Receive Date: 20150903
  Receipt Date: 20150903
  Transmission Date: 20151125
  Serious: No
  Sender: FDA-Public Use
  Company Number: US-ELI_LILLY_AND_COMPANY-US201202003879

PATIENT
  Age: 35 Year
  Sex: Female

DRUGS (2)
  1. CYMBALTA [Suspect]
     Active Substance: DULOXETINE HYDROCHLORIDE
     Indication: DEPRESSION
     Dosage: 90 MG, UNKNOWN
  2. ASENAPINE [Interacting]
     Active Substance: ASENAPINE
     Dosage: 5 MG, UNKNOWN

REACTIONS (3)
  - Agitation [Recovered/Resolved]
  - Nightmare [Recovered/Resolved]
  - Drug interaction [Recovered/Resolved]
